FAERS Safety Report 5316411-6 (Version None)
Quarter: 2007Q2

REPORT INFORMATION
  Report Type: 
  Country: None (occurrence: None)
  Receive Date: 20070504
  Receipt Date: 20070424
  Transmission Date: 20071010
  Serious: Yes (Hospitalization, Other)
  Sender: FDA-Public Use
  Company Number: SE-JNJFOC-20070405387

PATIENT
  Age: 44 Year
  Sex: Female

DRUGS (10)
  1. REMICADE [Suspect]
     Indication: RHEUMATOID ARTHRITIS
     Route: 042
  2. CALCICHEW [Concomitant]
  3. LASIX [Concomitant]
  4. PANTOPRAZOLE SODIUM [Concomitant]
  5. METHOTRAXATE [Concomitant]
  6. ACETAMINOPHEN [Concomitant]
  7. PREDNISONE [Concomitant]
  8. FOLACIN [Concomitant]
  9. OXYCONTIN [Concomitant]
  10. OXYNORM [Concomitant]

REACTIONS (6)
  - ARTERIAL OCCLUSIVE DISEASE [None]
  - DEEP VEIN THROMBOSIS [None]
  - GASTRIC HAEMORRHAGE [None]
  - LEG AMPUTATION [None]
  - PULMONARY EMBOLISM [None]
  - VASCULITIS [None]
